FAERS Safety Report 7253352-1 (Version None)
Quarter: 2011Q1

REPORT INFORMATION
  Report Type: 
  Country: None (occurrence: None)
  Receive Date: 20110129
  Receipt Date: 20100420
  Transmission Date: 20110831
  Serious: No
  Sender: FDA-Public Use
  Company Number: US-ABBOTT-10P-163-0631162-00

PATIENT
  Sex: Male
  Weight: 97.61 kg

DRUGS (8)
  1. COLAZAL [Concomitant]
     Indication: CROHN'S DISEASE
  2. HUMIRA [Suspect]
     Indication: CROHN'S DISEASE
     Dosage: 160MG DOSE DAY 1
     Route: 058
     Dates: start: 20100202, end: 20100202
  3. HUMIRA [Suspect]
     Dates: start: 20100305
  4. ENTOCORT EC [Concomitant]
  5. HUMIRA [Suspect]
     Dates: start: 20100219, end: 20100219
  6. ABILIFY [Concomitant]
  7. LEXAPRO [Concomitant]
  8. HUMIRA [Suspect]
     Dates: start: 20100226, end: 20100226

REACTIONS (4)
  - EYE SWELLING [None]
  - DRUG INEFFECTIVE [None]
  - CROHN'S DISEASE [None]
  - PRURITUS [None]
